FAERS Safety Report 7472644-4 (Version None)
Quarter: 2011Q2

REPORT INFORMATION
  Report Type: 
  Country: None (occurrence: None)
  Receive Date: 20110502
  Receipt Date: 20110418
  Transmission Date: 20111010
  Serious: Yes (Hospitalization)
  Sender: FDA-Public Use
  Company Number: 028606

PATIENT
  Sex: Female

DRUGS (4)
  1. CIMZIA [Suspect]
     Indication: RHEUMATOID ARTHRITIS
     Dosage: 200 MG 1X/2 WEEKS SUBCUTANEOUS
     Route: 058
     Dates: start: 20090715, end: 20110124
  2. REBAMIPIDE (MUCOSTA TABLETS (REBAMIPIDE)) [Suspect]
     Indication: PROPHYLAXIS
     Dosage: 200 MG ORAL
     Route: 048
     Dates: start: 20090422, end: 20110217
  3. RHEUMATREX [Suspect]
     Indication: RHEUMATOID ARTHRITIS
     Dosage: 8 MG 1X/WEEK ORAL
     Route: 048
     Dates: start: 20080711, end: 20110212
  4. FOLIC ACID [Suspect]
     Indication: RHEUMATOID ARTHRITIS
     Dosage: 5 MG ORAL
     Route: 048
     Dates: start: 20080615, end: 20110213

REACTIONS (2)
  - LYMPHOMA [None]
  - ANXIETY [None]
